FAERS Safety Report 18006238 (Version 1)
Quarter: 2020Q3

REPORT INFORMATION
  Report Type: Spontaneous
  Country: US (occurrence: US)
  Receive Date: 20200710
  Receipt Date: 20200710
  Transmission Date: 20201103
  Serious: No
  Sender: FDA-Public Use
  Company Number: US-009507513-2007USA003318

PATIENT
  Age: 7 Year
  Sex: Male

DRUGS (3)
  1. BEVACIZUMAB. [Concomitant]
     Active Substance: BEVACIZUMAB
     Indication: CUTANEOUS T-CELL LYMPHOMA
     Dosage: 10 MILLIGRAM/KILOGRAM, Q2M
  2. TEMODAR [Suspect]
     Active Substance: TEMOZOLOMIDE
     Indication: CUTANEOUS T-CELL LYMPHOMA
     Dosage: 90 MILLIGRAM/SQ. METER, QD
  3. CETUXIMAB. [Concomitant]
     Active Substance: CETUXIMAB
     Indication: CUTANEOUS T-CELL LYMPHOMA
     Dosage: 250 MILLIGRAM/SQ. METER, QW

REACTIONS (1)
  - Off label use [Unknown]
